APPROVED DRUG PRODUCT: AMPHOTERICIN B
Active Ingredient: AMPHOTERICIN B
Strength: 50MG/VIAL
Dosage Form/Route: INJECTABLE;INJECTION
Application: A064062 | Product #001
Applicant: TEVA PARENTERAL MEDICINES INC
Approved: Mar 31, 1995 | RLD: No | RS: No | Type: DISCN